FAERS Safety Report 23285055 (Version 1)
Quarter: 2023Q4

REPORT INFORMATION
  Report Type: Spontaneous
  Country: GB (occurrence: GB)
  Receive Date: 20231211
  Receipt Date: 20231211
  Transmission Date: 20240110
  Serious: Yes (Other)
  Sender: FDA-Public Use
  Company Number: GB-GILEAD-2023-0654394

PATIENT
  Age: 48 Year
  Sex: Female

DRUGS (1)
  1. TRODELVY [Suspect]
     Active Substance: SACITUZUMAB GOVITECAN-HZIY
     Indication: HER2 low breast cancer
     Dosage: UNK
     Route: 065
     Dates: start: 202303, end: 202306

REACTIONS (2)
  - Disease progression [Recovered/Resolved]
  - Drug resistance mutation [Unknown]

NARRATIVE: CASE EVENT DATE: 20230101
